FAERS Safety Report 5037091-3 (Version None)
Quarter: 2006Q2

REPORT INFORMATION
  Report Type: 
  Country: None (occurrence: None)
  Receive Date: 20060616
  Receipt Date: 20060403
  Transmission Date: 20061013
  Serious: No
  Sender: FDA-Public Use
  Company Number: 2006RL000118

PATIENT
  Age: 68 Year
  Sex: Female
  Weight: 92.9874 kg

DRUGS (4)
  1. OMACOR [Suspect]
     Indication: BLOOD TRIGLYCERIDES INCREASED
     Dosage: 4 GM QD PO
     Route: 048
     Dates: start: 20060301
  2. TOPROL-XL [Concomitant]
  3. BENICAR [Concomitant]
  4. GLUCOSAMINE W/ CHONDROITIN [Concomitant]

REACTIONS (1)
  - PAIN IN EXTREMITY [None]
